FAERS Safety Report 10731956 (Version 2)
Quarter: 2015Q1

REPORT INFORMATION
  Report Type: Not Available
  Country: US (occurrence: US)
  Receive Date: 20150123
  Receipt Date: 20150123
  Transmission Date: 20150721
  Serious: No
  Sender: FDA-Public Use
  Company Number: US-LUPIN PHARMACEUTICALS INC.-E2B_00002965

PATIENT
  Sex: Male

DRUGS (1)
  1. IRBESARTAN TABLETS USP 150 MG [Suspect]
     Active Substance: IRBESARTAN
     Indication: PRODUCT USED FOR UNKNOWN INDICATION

REACTIONS (3)
  - Dysgeusia [Unknown]
  - Dyspepsia [Unknown]
  - Throat irritation [Unknown]
